FAERS Safety Report 14582301 (Version 3)
Quarter: 2021Q1

REPORT INFORMATION
  Report Type: Other
  Country: US (occurrence: US)
  Receive Date: 20180228
  Receipt Date: 20210217
  Transmission Date: 20210419
  Serious: No
  Sender: FDA-Public Use
  Company Number: US-ROCHE-2074575

PATIENT
  Sex: Female

DRUGS (1)
  1. OCREVUS [Suspect]
     Active Substance: OCRELIZUMAB
     Indication: MULTIPLE SCLEROSIS
     Route: 065
     Dates: start: 20180207

REACTIONS (4)
  - Animal bite [Unknown]
  - Lower respiratory tract infection [Unknown]
  - Cough [Unknown]
  - Illness [Recovered/Resolved]
